FAERS Safety Report 13916227 (Version 2)
Quarter: 2017Q3

REPORT INFORMATION
  Report Type: Spontaneous
  Country: US (occurrence: US)
  Receive Date: 20170829
  Receipt Date: 20170927
  Transmission Date: 20171127
  Serious: Yes (Other)
  Sender: FDA-Public Use
  Company Number: US-WEST-WARD PHARMACEUTICALS CORP.-US-H14001-17-03143

PATIENT
  Age: 66 Year
  Sex: Female

DRUGS (5)
  1. IMIQUIMOD. [Concomitant]
     Active Substance: IMIQUIMOD
     Indication: ANORECTAL DISORDER
     Route: 065
  2. PREDNISONE. [Suspect]
     Active Substance: PREDNISONE
     Indication: IMMUNOSUPPRESSION
     Route: 048
  3. SINECATECHINS [Concomitant]
     Active Substance: SINECATECHINS
     Indication: ANORECTAL DISORDER
     Route: 065
  4. MYCOPHENOLIC ACID. [Suspect]
     Active Substance: MYCOPHENOLIC ACID
     Indication: IMMUNOSUPPRESSION
     Route: 065
  5. CANDIDA ANTIGEN [Concomitant]
     Indication: ANORECTAL DISORDER
     Route: 065

REACTIONS (2)
  - Papilloma viral infection [Recovered/Resolved]
  - Epidermodysplasia verruciformis [Recovered/Resolved]
